FAERS Safety Report 4918491-6 (Version None)
Quarter: 2006Q1

REPORT INFORMATION
  Report Type: 
  Country: None (occurrence: None)
  Receive Date: 20060222
  Receipt Date: 20060209
  Transmission Date: 20060701
  Serious: Yes (Hospitalization)
  Sender: FDA-Public Use
  Company Number: FR-JNJFOC-20060204572

PATIENT
  Age: 59 Year
  Sex: Female

DRUGS (12)
  1. CONTRAMAL [Suspect]
     Indication: DRUG USE FOR UNKNOWN INDICATION
     Route: 065
  2. TAXOTERE [Suspect]
     Indication: BREAST CANCER
     Route: 042
  3. IXEL [Suspect]
     Indication: DRUG USE FOR UNKNOWN INDICATION
     Route: 048
  4. KYTRIL [Suspect]
     Indication: DRUG USE FOR UNKNOWN INDICATION
     Route: 042
  5. LEXOMIL [Concomitant]
     Route: 065
  6. DI-ANTALVIC [Concomitant]
     Route: 065
  7. DI-ANTALVIC [Concomitant]
     Route: 065
  8. PREVISCAN [Concomitant]
     Route: 065
  9. VOGALENE [Concomitant]
     Route: 065
  10. XANAX [Concomitant]
     Route: 065
  11. POLARAMINE [Concomitant]
     Route: 065
  12. SOLUPRED [Concomitant]
     Route: 065

REACTIONS (2)
  - CONSTIPATION [None]
  - ILEUS PARALYTIC [None]
